FAERS Safety Report 21568939 (Version 3)
Quarter: 2023Q2

REPORT INFORMATION
  Report Type: Report from Study
  Country: US (occurrence: US)
  Receive Date: 20221108
  Receipt Date: 20230428
  Transmission Date: 20230722
  Serious: No
  Sender: FDA-Public Use
  Company Number: US-ABBVIE-4191367

PATIENT
  Sex: Female

DRUGS (1)
  1. HUMIRA [Suspect]
     Active Substance: ADALIMUMAB
     Indication: Rheumatoid arthritis
     Dosage: CITRATE FREE, FORM STRENGTH 40MG
     Route: 058
     Dates: start: 20220409, end: 20221012

REACTIONS (9)
  - Sjogren^s syndrome [Unknown]
  - Arthralgia [Unknown]
  - Pain [Unknown]
  - Dyspnoea [Unknown]
  - Arthralgia [Unknown]
  - Sinusitis [Unknown]
  - Pain in extremity [Unknown]
  - Bronchitis [Unknown]
  - Peripheral swelling [Unknown]
